FAERS Safety Report 6676096-3 (Version None)
Quarter: 2010Q2

REPORT INFORMATION
  Report Type: 
  Country: None (occurrence: None)
  Receive Date: 20100412
  Receipt Date: 20100331
  Transmission Date: 20101027
  Serious: Yes (Other)
  Sender: FDA-Public Use
  Company Number: JP-PFIZER INC-2010041727

PATIENT
  Sex: Female

DRUGS (3)
  1. ZOLOFT [Suspect]
     Dosage: 25 MG DAILY
     Route: 048
     Dates: start: 20100201
  2. ZOLOFT [Suspect]
     Dosage: 50 MG DAILY
     Route: 048
  3. ZOLOFT [Suspect]
     Dosage: 100 MG DAILY
     Route: 048

REACTIONS (2)
  - HEARING IMPAIRED [None]
  - VISUAL IMPAIRMENT [None]
